FAERS Safety Report 15454584 (Version 2)
Quarter: 2018Q4

REPORT INFORMATION
  Report Type: Spontaneous
  Country: US (occurrence: US)
  Receive Date: 20181002
  Receipt Date: 20181004
  Transmission Date: 20190204
  Serious: No
  Sender: FDA-Public Use
  Company Number: US-PFIZER INC-2018392863

PATIENT
  Age: 60 Year
  Sex: Male

DRUGS (1)
  1. EUCRISA [Suspect]
     Active Substance: CRISABOROLE
     Indication: ECZEMA
     Dosage: UNK, 1X/DAY

REACTIONS (3)
  - Application site erythema [Unknown]
  - Application site irritation [Unknown]
  - Application site pruritus [Unknown]
